FAERS Safety Report 6726299-4 (Version None)
Quarter: 2010Q2

REPORT INFORMATION
  Report Type: 
  Country: None (occurrence: None)
  Receive Date: 20100514
  Receipt Date: 20100507
  Transmission Date: 20101027
  Serious: Yes (Hospitalization)
  Sender: FDA-Public Use
  Company Number: A0783359A

PATIENT
  Age: 39 Year
  Sex: Female

DRUGS (1)
  1. AVANDIA [Suspect]
     Dosage: 4U TWICE PER DAY
     Route: 048
     Dates: start: 20000221, end: 20060101

REACTIONS (2)
  - FATIGUE [None]
  - MYOCARDIAL INFARCTION [None]
